FAERS Safety Report 20169013 (Version 3)
Quarter: 2022Q1

REPORT INFORMATION
  Report Type: Other
  Country: GB (occurrence: None)
  Receive Date: 20211210
  Receipt Date: 20220303
  Transmission Date: 20220424
  Serious: Yes (Death, Hospitalization)
  Sender: FDA-Public Use
  Company Number: GB-ROCHE-2976216

PATIENT
  Age: 68 Year
  Sex: Female

DRUGS (23)
  1. ATEZOLIZUMAB [Suspect]
     Active Substance: ATEZOLIZUMAB
     Indication: Small cell lung cancer extensive stage
     Dosage: DATE OF MOST RECENT DOSE 10-JUN-2021
     Route: 041
     Dates: start: 20210401
  2. CARBOPLATIN [Suspect]
     Active Substance: CARBOPLATIN
     Indication: Small cell lung cancer extensive stage
     Route: 065
     Dates: start: 20210401
  3. ETOPOSIDE [Suspect]
     Active Substance: ETOPOSIDE
     Indication: Small cell lung cancer extensive stage
     Route: 065
     Dates: start: 20210401
  4. AMLODIPINE [Concomitant]
     Active Substance: AMLODIPINE BESYLATE
  5. BISOPROLOL [Concomitant]
     Active Substance: BISOPROLOL
  6. RAMIPRIL [Concomitant]
     Active Substance: RAMIPRIL
  7. ACETAMINOPHEN [Concomitant]
     Active Substance: ACETAMINOPHEN
  8. MOVICOL [Concomitant]
     Active Substance: POLYETHYLENE GLYCOL 3350\POTASSIUM CHLORIDE\SODIUM BICARBONATE\SODIUM CHLORIDE
     Dates: start: 20210427
  9. GLYCERIN [Concomitant]
     Active Substance: GLYCERIN
     Dates: start: 20210430
  10. GLYCERIN [Concomitant]
     Active Substance: GLYCERIN
     Dates: start: 20211114, end: 20211121
  11. DOCUSATE SODIUM [Concomitant]
     Active Substance: DOCUSATE SODIUM
     Dates: start: 20210601
  12. POLYETHYLENE GLYCOL 3350\POTASSIUM CHLORIDE\SODIUM BICARBONATE\SODIUM [Concomitant]
     Active Substance: POLYETHYLENE GLYCOL 3350\POTASSIUM CHLORIDE\SODIUM BICARBONATE\SODIUM CHLORIDE
  13. POLYETHYLENE GLYCOLS [Concomitant]
     Active Substance: POLYETHYLENE GLYCOLS
  14. SENNOSIDES [Concomitant]
     Active Substance: SENNOSIDES
  15. NICOTINE [Concomitant]
     Active Substance: NICOTINE
     Dates: start: 20210522
  16. FORTISIP COMPACT PROTEIN [Concomitant]
  17. METOCLOPRAMIDE HYDROCHLORIDE [Concomitant]
     Active Substance: METOCLOPRAMIDE HYDROCHLORIDE
     Dates: start: 20210620
  18. PEPTAC (UNITED KINGDOM) [Concomitant]
     Dates: start: 20210620
  19. BISACODYL [Concomitant]
     Active Substance: BISACODYL
     Dates: start: 20210426
  20. ACETAMINOPHEN [Concomitant]
     Active Substance: ACETAMINOPHEN
     Route: 042
     Dates: start: 20211112
  21. SENNA [Concomitant]
     Active Substance: SENNA LEAF\SENNOSIDES\SENNOSIDES A AND B
  22. BUPIVACAINE [Concomitant]
     Active Substance: BUPIVACAINE
  23. MORPHINE [Concomitant]
     Active Substance: MORPHINE

REACTIONS (1)
  - Large intestinal obstruction [Fatal]

NARRATIVE: CASE EVENT DATE: 20211118
